FAERS Safety Report 8514581 (Version 4)
Quarter: 2013Q4

REPORT INFORMATION
  Report Type: Report from Study
  Country: US (occurrence: US)
  Receive Date: 20120406
  Receipt Date: 20131108
  Transmission Date: 20140711
  Serious: Yes (Other)
  Sender: FDA-Public Use
  Company Number: US-009507513-2012SP016941

PATIENT
  Age: 57 Year
  Sex: Female

DRUGS (4)
  1. RIBAVIRIN [Suspect]
     Indication: HEPATITIS C
     Dosage: 600 MG, BID
     Route: 048
     Dates: start: 20120214
  2. VICTRELIS [Suspect]
     Indication: HEPATITIS C
     Dosage: UNK
     Dates: start: 20120327
  3. PEGASYS [Suspect]
     Indication: HEPATITIS C
     Dosage: 180 ?G, QW
     Route: 058
     Dates: start: 20120214
  4. TELAPREVIR [Suspect]
     Indication: HEPATITIS C
     Dosage: 375 MG, Q8H
     Dates: start: 20120214, end: 20120228

REACTIONS (12)
  - Loss of consciousness [Unknown]
  - Anorectal discomfort [Unknown]
  - Haemorrhoidal haemorrhage [Unknown]
  - Haemorrhage [Unknown]
  - Haemorrhoids [Unknown]
  - Abdominal distension [Unknown]
  - Gastrointestinal mucosal disorder [Unknown]
  - Fatigue [Unknown]
  - Iron deficiency anaemia [Unknown]
  - Alopecia [Unknown]
  - Anxiety [Unknown]
  - Depression [Unknown]
